FAERS Safety Report 10673915 (Version 1)
Quarter: 2014Q4

REPORT INFORMATION
  Report Type: Spontaneous
  Country: CA (occurrence: None)
  Receive Date: 20141223
  Receipt Date: 20141223
  Transmission Date: 20150529
  Serious: No
  Sender: FDA-Public Use
  Company Number: None

PATIENT
  Age: 76 Year
  Sex: Male
  Weight: 67.13 kg

DRUGS (1)
  1. APO FENO MICRO 200 MG. [Suspect]
     Active Substance: FENOFIBRATE
     Indication: BLOOD CHOLESTEROL ABNORMAL
     Dosage: 1/DAY  MOUTH
     Route: 048
     Dates: start: 20141008, end: 20141122

REACTIONS (4)
  - Vision blurred [None]
  - Myalgia [None]
  - Pollakiuria [None]
  - Chromaturia [None]

NARRATIVE: CASE EVENT DATE: 20141120
